FAERS Safety Report 6449843-3 (Version None)
Quarter: 2009Q4

REPORT INFORMATION
  Report Type: 
  Country: None (occurrence: None)
  Receive Date: 20091120
  Receipt Date: 20091117
  Transmission Date: 20100525
  Serious: Yes (Other)
  Sender: FDA-Public Use
  Company Number: US-JNJCH-2009025458

PATIENT
  Sex: Female
  Weight: 59.9 kg

DRUGS (4)
  1. NEOSPORIN [Suspect]
     Indication: ANIMAL BITE
     Dosage: TEXT:^SMALL AMOUNT^ 2X A DAY
     Route: 061
     Dates: start: 20090904, end: 20090910
  2. NEOSPORIN [Suspect]
     Dosage: TEXT:UNKNOWN
     Route: 061
  3. GLUCOPHAGE [Concomitant]
     Indication: DIABETES MELLITUS
     Dosage: TEXT:800 MG 2X DAY
     Route: 065
  4. CLINDAMYCIN [Concomitant]
     Indication: DRUG USE FOR UNKNOWN INDICATION
     Dosage: TEXT:UNSPECIFIED
     Route: 048

REACTIONS (4)
  - APPLICATION SITE PRURITUS [None]
  - APPLICATION SITE RASH [None]
  - OFF LABEL USE [None]
  - STAPHYLOCOCCAL INFECTION [None]
